FAERS Safety Report 10046939 (Version 1)
Quarter: 2014Q1

REPORT INFORMATION
  Report Type: Spontaneous
  Country: US (occurrence: None)
  Receive Date: 20140328
  Receipt Date: 20140328
  Transmission Date: 20141002
  Serious: Yes (Death, Hospitalization)
  Sender: FDA-Public Use
  Company Number: None

PATIENT
  Age: 9 Month
  Sex: Female
  Weight: 7.66 kg

DRUGS (2)
  1. CYTARABINE [Suspect]
     Dates: end: 20140309
  2. MITOXANTRONE HYDROCHLORIDE [Suspect]
     Dates: end: 20140311

REACTIONS (2)
  - Venoocclusive liver disease [None]
  - Endotracheal intubation [None]
